FAERS Safety Report 8971520 (Version 3)
Quarter: 2014Q2

REPORT INFORMATION
  Report Type: Spontaneous
  Country: US (occurrence: US)
  Receive Date: 20121217
  Receipt Date: 20140620
  Transmission Date: 20141212
  Serious: Yes (Hospitalization)
  Sender: FDA-Public Use
  Company Number: US-009507513-1212USA005712

PATIENT
  Sex: Female
  Weight: 84.35 kg

DRUGS (9)
  1. NUVARING [Suspect]
     Indication: MENSTRUAL DISORDER
     Dosage: UNK
     Route: 067
     Dates: start: 2005, end: 20090105
  2. EFFEXOR [Concomitant]
     Indication: FIBROMYALGIA
     Dosage: UNK
     Dates: start: 200812, end: 200901
  3. EFFEXOR [Concomitant]
     Indication: ABDOMINAL PAIN
  4. SINGULAIR [Concomitant]
     Indication: HYPERSENSITIVITY
     Dosage: UNK
     Route: 048
     Dates: start: 1999, end: 2012
  5. BENADRYL [Concomitant]
     Indication: HYPERSENSITIVITY
     Dosage: UNK
     Dates: start: 200812, end: 200901
  6. ZYRTEC [Concomitant]
     Dosage: UNK
     Dates: start: 1999, end: 2012
  7. FLONASE [Concomitant]
     Dosage: UNK
     Dates: start: 1999, end: 2012
  8. EPINEPHRINE [Concomitant]
     Indication: HYPERSENSITIVITY
     Dosage: UNK
     Dates: start: 200812, end: 200901
  9. MIDOL (ASPIRIN (+) CAFFEINE) [Concomitant]
     Indication: DYSMENORRHOEA
     Dosage: UNK
     Dates: start: 200812, end: 200901

REACTIONS (7)
  - Deep vein thrombosis [Recovered/Resolved]
  - Influenza [Unknown]
  - Craniocerebral injury [Unknown]
  - Back pain [Unknown]
  - Abdominal pain [Unknown]
  - Gallbladder disorder [Unknown]
  - Nephrolithiasis [Unknown]
